FAERS Safety Report 9124124 (Version 2)
Quarter: 2013Q1

REPORT INFORMATION
  Report Type: Spontaneous
  Country: US (occurrence: US)
  Receive Date: 20130227
  Receipt Date: 20130306
  Transmission Date: 20140127
  Serious: Yes (Death, Hospitalization)
  Sender: FDA-Public Use
  Company Number: US-B.I. PHARMACEUTICALS,INC./RIDGEFIELD-2013-BI-05159BP

PATIENT
  Age: 82 Year
  Sex: 0

DRUGS (9)
  1. PRADAXA [Suspect]
  2. SIMVASTATIN [Concomitant]
  3. LOPRESSOR [Concomitant]
  4. COZAAR [Concomitant]
  5. ASPIRIN [Concomitant]
  6. ONGLYZA [Concomitant]
  7. NIASPAN [Concomitant]
  8. ACTOS [Concomitant]
  9. METFORMIN [Concomitant]

REACTIONS (4)
  - Haemorrhage [Fatal]
  - Fall [Unknown]
  - Injury [Unknown]
  - Activated partial thromboplastin time [Unknown]
